FAERS Safety Report 10704074 (Version 3)
Quarter: 2015Q1

REPORT INFORMATION
  Report Type: Spontaneous
  Country: AT (occurrence: AT)
  Receive Date: 20150112
  Receipt Date: 20150210
  Transmission Date: 20150721
  Serious: Yes (Death, Other)
  Sender: FDA-Public Use
  Company Number: PHHY2015AT002321

PATIENT
  Sex: Female

DRUGS (1)
  1. TASIGNA [Suspect]
     Active Substance: NILOTINIB
     Indication: PRODUCT USED FOR UNKNOWN INDICATION
     Dosage: FETAL DRUG EXPOSURE VIA FATHER
     Route: 050

REACTIONS (4)
  - Exposure via father [Unknown]
  - Foetal death [Fatal]
  - Cardiovascular disorder [Unknown]
  - Deformity thorax [Unknown]

NARRATIVE: CASE EVENT DATE: 20150101
